FAERS Safety Report 10930913 (Version 1)
Quarter: 2015Q1

REPORT INFORMATION
  Report Type: Spontaneous
  Country: US (occurrence: None)
  Receive Date: 20150318
  Receipt Date: 20150318
  Transmission Date: 20150721
  Serious: Yes (Death)
  Sender: FDA-Public Use
  Company Number: None

PATIENT
  Age: 92 Year
  Sex: Female

DRUGS (1)
  1. EXJADE [Suspect]
     Active Substance: DEFERASIROX
     Indication: IRON OVERLOAD
     Dosage: 500MG 3TO4 TIMES PER WEEK PO
     Route: 048
     Dates: start: 201206, end: 201412

REACTIONS (2)
  - Cardiac failure congestive [None]
  - Aortic stenosis [None]

NARRATIVE: CASE EVENT DATE: 20150217
